FAERS Safety Report 5546941-3 (Version None)
Quarter: 2007Q4

REPORT INFORMATION
  Report Type: 
  Country: None (occurrence: None)
  Receive Date: 20071206
  Receipt Date: 20071122
  Transmission Date: 20080405
  Serious: Yes (Other)
  Sender: FDA-Public Use
  Company Number: 2007JP005336

PATIENT
  Sex: 0

DRUGS (1)
  1. PROTOPIC [Suspect]
     Dosage: TOPICAL
     Route: 061

REACTIONS (1)
  - KAPOSI'S VARICELLIFORM ERUPTION [None]
